FAERS Safety Report 8899167 (Version 1)
Quarter: 2012Q4

REPORT INFORMATION
  Report Type: 
  Country: US (occurrence: US)
  Receive Date: 20121109
  Receipt Date: 20121109
  Transmission Date: 20130627
  Serious: Yes (Death)
  Sender: FDA-Public Use
  Company Number: CHPA2012US023213

PATIENT
  Sex: Female

DRUGS (2)
  1. THERAPEUTIC MINERAL ICE [Suspect]
     Dosage: Unk, Unk
     Route: 061
  2. BENGAY [Suspect]
     Dosage: Unk, Unk

REACTIONS (2)
  - Death [Fatal]
  - Wrong technique in drug usage process [Unknown]
